FAERS Safety Report 19493305 (Version 1)
Quarter: 2021Q3

REPORT INFORMATION
  Report Type: Spontaneous
  Country: HR (occurrence: HR)
  Receive Date: 20210705
  Receipt Date: 20210705
  Transmission Date: 20211014
  Serious: Yes (Other)
  Sender: FDA-Public Use
  Company Number: HR-TEVA-2020-HR-1836203

PATIENT
  Sex: Female

DRUGS (6)
  1. ZIPANTOLA 40 MG [Suspect]
     Active Substance: PANTOPRAZOLE SODIUM
     Indication: DYSPEPSIA
     Route: 048
     Dates: start: 2020, end: 202103
  2. REFLUSTAT [Suspect]
     Active Substance: CALCIUM CARBONATE\SODIUM ALGINATE\SODIUM BICARBONATE\SODIUM CARBONATE
     Indication: DYSPEPSIA
     Route: 065
     Dates: start: 2020
  3. GINGER [ZINGIBER OFFICINALE RHIZOME] [Suspect]
     Active Substance: GINGER
     Indication: DYSPEPSIA
     Route: 065
     Dates: start: 2020
  4. REDUFLUX [Suspect]
     Active Substance: ALGINIC ACID\CALCIUM CARBONATE\SODIUM BICARBONATE
     Indication: DYSPEPSIA
     Route: 065
     Dates: start: 2020
  5. RENNIE [CALCIUM CARBONATE/MAGNESIUM CARBONATE] [Suspect]
     Active Substance: CALCIUM CARBONATE\MAGNESIUM CARBONATE
     Indication: DYSPEPSIA
     Route: 065
     Dates: start: 2020
  6. GASTAL [Suspect]
     Active Substance: ALUMINUM HYDROXIDE - MAGNESIUM CARBONATE, CO-DRIED GEL\MAGNESIUM HYDROXIDE
     Indication: DYSPEPSIA
     Route: 065
     Dates: start: 2020

REACTIONS (5)
  - Maternal exposure during pregnancy [Unknown]
  - Normal newborn [Unknown]
  - Caesarean section [Unknown]
  - Drug ineffective [Unknown]
  - Maternal exposure during breast feeding [Unknown]

NARRATIVE: CASE EVENT DATE: 202005
